FAERS Safety Report 9328707 (Version 1)
Quarter: 2013Q2

REPORT INFORMATION
  Report Type: Spontaneous
  Country: US (occurrence: US)
  Receive Date: 20130604
  Receipt Date: 20130604
  Transmission Date: 20140414
  Serious: No
  Sender: FDA-Public Use
  Company Number: US-SANOFI-AVENTIS-2013SA010140

PATIENT
  Sex: Female

DRUGS (3)
  1. LANTUS SOLOSTAR [Suspect]
     Dosage: DOSE:25 UNIT(S)
     Route: 051
     Dates: start: 2012
  2. LANTUS SOLOSTAR [Suspect]
     Dosage: DOSE:80 UNIT(S)
     Route: 051
     Dates: start: 2012
  3. SOLOSTAR [Suspect]
     Dates: start: 2012

REACTIONS (1)
  - Nervousness [Unknown]
